FAERS Safety Report 8380027-8 (Version None)
Quarter: 2012Q2

REPORT INFORMATION
  Report Type: 
  Country: None (occurrence: None)
  Receive Date: 20120523
  Receipt Date: 20120517
  Transmission Date: 20120825
  Serious: No
  Sender: FDA-Public Use
  Company Number: US-PFIZER INC-2012120861

PATIENT
  Sex: Female
  Weight: 77.098 kg

DRUGS (3)
  1. AZITHROMYCIN [Suspect]
     Dosage: 250 MG, UNK
     Route: 048
     Dates: start: 20120511, end: 20120501
  2. TYLENOL [Concomitant]
     Indication: PYREXIA
     Dosage: UNK
  3. AZITHROMYCIN [Suspect]
     Indication: PHARYNGITIS STREPTOCOCCAL
     Dosage: 250 MG, 2X/DAY
     Route: 048
     Dates: start: 20120509, end: 20120511

REACTIONS (2)
  - SENSORY LOSS [None]
  - AGEUSIA [None]
